FAERS Safety Report 6913460-9 (Version None)
Quarter: 2010Q3

REPORT INFORMATION
  Report Type: 
  Country: None (occurrence: None)
  Receive Date: 20100803
  Receipt Date: 20100723
  Transmission Date: 20110219
  Serious: Yes (Life-Threatening)
  Sender: FDA-Public Use
  Company Number: DKLU1063961

PATIENT
  Age: 2 Year
  Sex: Male

DRUGS (1)
  1. COSMEGEN [Suspect]
     Indication: PRODUCT USED FOR UNKNOWN INDICATION
     Dosage: 0.8 MG MILLIGRAM(S), INTRAVENOUS
     Route: 042
     Dates: start: 20100524, end: 20100524

REACTIONS (3)
  - ACUTE HEPATIC FAILURE [None]
  - COAGULOPATHY [None]
  - HEPATIC ENCEPHALOPATHY [None]
